FAERS Safety Report 20620159 (Version 2)
Quarter: 2022Q2

REPORT INFORMATION
  Report Type: Spontaneous
  Country: US (occurrence: US)
  Receive Date: 20220322
  Receipt Date: 20220405
  Transmission Date: 20220721
  Serious: No
  Sender: FDA-Public Use
  Company Number: US-GRANULES-US-2022GRASPO00042

PATIENT
  Age: 78 Year
  Sex: Male
  Weight: 115 kg

DRUGS (4)
  1. METFORMIN HYDROCHLORIDE [Suspect]
     Active Substance: METFORMIN HYDROCHLORIDE
     Indication: Diabetes mellitus
     Route: 048
     Dates: start: 20220201
  2. PRAVASTATIN [Concomitant]
     Active Substance: PRAVASTATIN
     Indication: Product used for unknown indication
     Route: 065
  3. BENAZEPRIL [Concomitant]
     Active Substance: BENAZEPRIL HYDROCHLORIDE
     Indication: Product used for unknown indication
     Route: 065
  4. ASPIRIN [Concomitant]
     Active Substance: ASPIRIN
     Indication: Product used for unknown indication
     Route: 065

REACTIONS (1)
  - Blood pressure increased [Recovered/Resolved]

NARRATIVE: CASE EVENT DATE: 20220203
